FAERS Safety Report 7266964-6 (Version None)
Quarter: 2011Q1

REPORT INFORMATION
  Report Type: 
  Country: None (occurrence: None)
  Receive Date: 20110119
  Receipt Date: 20110112
  Transmission Date: 20110831
  Serious: Yes (Other)
  Sender: FDA-Public Use
  Company Number: 2010SP060628

PATIENT
  Age: 54 Year
  Sex: Male

DRUGS (4)
  1. DYPIRONE [Concomitant]
  2. PARACETAMOL [Concomitant]
  3. ADVIL [Concomitant]
  4. ORMIGREIN (ORMIGREIN / 01755201/ ) [Suspect]
     Indication: PAIN
     Dosage: PO
     Route: 048
     Dates: start: 19900101, end: 20100601

REACTIONS (2)
  - SUICIDAL IDEATION [None]
  - HEADACHE [None]
